FAERS Safety Report 10476368 (Version 3)
Quarter: 2014Q4

REPORT INFORMATION
  Report Type: Report from Study
  Country: US (occurrence: US)
  Receive Date: 20140925
  Receipt Date: 20141105
  Transmission Date: 20150528
  Serious: Yes (Death, Hospitalization)
  Sender: FDA-Public Use
  Company Number: US-AMGEN-USASP2014072792

PATIENT
  Age: 97 Year
  Sex: Female
  Weight: 36.28 kg

DRUGS (1)
  1. PROLIA [Suspect]
     Active Substance: DENOSUMAB
     Indication: OSTEOPOROSIS POSTMENOPAUSAL
     Dosage: UNK
     Route: 065
     Dates: start: 20121005

REACTIONS (3)
  - Rib fracture [Recovering/Resolving]
  - Neurodegenerative disorder [Fatal]
  - Dementia [Fatal]

NARRATIVE: CASE EVENT DATE: 2012
